FAERS Safety Report 9059448 (Version 1)
Quarter: 2013Q1

REPORT INFORMATION
  Report Type: Spontaneous
  Country: FR (occurrence: FR)
  Receive Date: 20130212
  Receipt Date: 20130212
  Transmission Date: 20140127
  Serious: Yes (Life-Threatening)
  Sender: FDA-Public Use
  Company Number: FR-AMGEN-FRASP2013008952

PATIENT
  Age: 78 Year
  Sex: Male
  Weight: 77 kg

DRUGS (10)
  1. VECTIBIX [Suspect]
     Indication: RECTAL CANCER
     Dosage: 460 MG, (6MG/KG), UNK
     Route: 042
     Dates: start: 20130115, end: 20130115
  2. KREDEX [Concomitant]
     Dosage: UNK
  3. DIFFU-K [Concomitant]
     Dosage: UNK
  4. TRIATEC                            /00885601/ [Concomitant]
     Dosage: UNK
  5. INIPOMP [Concomitant]
     Dosage: UNK
  6. TRAMADOL [Concomitant]
     Dosage: UNK
  7. ZOPHREN                            /00955301/ [Concomitant]
     Indication: PREMEDICATION
     Dosage: 8 MG, UNK
     Route: 042
     Dates: start: 20130115, end: 20130115
  8. LEUCOVORIN                         /00566701/ [Concomitant]
     Indication: RECTAL CANCER
     Dosage: UNK
  9. 5 FU [Concomitant]
     Indication: RECTAL CANCER
     Dosage: UNK
  10. IRINOTECAN [Concomitant]
     Indication: RECTAL CANCER
     Dosage: UNK

REACTIONS (2)
  - Hypoxia [Recovering/Resolving]
  - Dyspnoea [Recovering/Resolving]
